FAERS Safety Report 7453863-X (Version None)
Quarter: 2011Q2

REPORT INFORMATION
  Report Type: 
  Country: None (occurrence: None)
  Receive Date: 20110502
  Receipt Date: 20110422
  Transmission Date: 20111010
  Serious: Yes (Life-Threatening, Hospitalization)
  Sender: FDA-Public Use
  Company Number: US-BAXTER-2011BH008860

PATIENT
  Age: 56 Year
  Sex: Male
  Weight: 90 kg

DRUGS (11)
  1. MORPHINE [Concomitant]
     Indication: CHEST PAIN
     Route: 042
     Dates: start: 20110403, end: 20110403
  2. PERCOCET [Concomitant]
     Indication: PAIN
     Route: 048
     Dates: start: 20110402
  3. NITROGLYCERIN IN DEXTROSE 5% [Suspect]
     Indication: ACUTE MYOCARDIAL INFARCTION
     Route: 041
     Dates: start: 20110403, end: 20110403
  4. POTASSIUM [Concomitant]
     Indication: PRODUCT USED FOR UNKNOWN INDICATION
     Route: 042
     Dates: start: 20110402
  5. NITROGLYCERIN [Concomitant]
     Indication: CHEST PAIN
     Route: 060
     Dates: start: 20110402
  6. NITROGLYCERIN IN DEXTROSE 5% [Suspect]
     Indication: ANGINA PECTORIS
     Route: 041
     Dates: start: 20110403, end: 20110403
  7. AMLODIPINE [Concomitant]
     Indication: HYPERTENSION
     Route: 048
     Dates: start: 20110402, end: 20110402
  8. COREG [Concomitant]
     Indication: PRODUCT USED FOR UNKNOWN INDICATION
     Route: 048
     Dates: start: 20110402
  9. NITROGLYCERIN IN DEXTROSE 5% [Suspect]
     Indication: HYPERTENSION
     Route: 041
     Dates: start: 20110403, end: 20110403
  10. DIOVAN HCT [Concomitant]
     Indication: PRODUCT USED FOR UNKNOWN INDICATION
     Route: 048
     Dates: start: 20110402
  11. SIMVASTATIN [Concomitant]
     Indication: PRODUCT USED FOR UNKNOWN INDICATION
     Route: 048
     Dates: start: 20110402

REACTIONS (1)
  - DRUG INEFFECTIVE [None]
